FAERS Safety Report 9204977 (Version 1)
Quarter: 2013Q2

REPORT INFORMATION
  Report Type: Spontaneous
  Country: KR (occurrence: KR)
  Receive Date: 20130402
  Receipt Date: 20130402
  Transmission Date: 20140414
  Serious: Yes (Other)
  Sender: FDA-Public Use
  Company Number: PHHY2013KR029187

PATIENT
  Age: 71 Year
  Sex: Female

DRUGS (6)
  1. CICLOSPORIN [Suspect]
     Indication: SKIN LESION
  2. COLCHICINE [Suspect]
     Indication: SKIN LESION
  3. ACETYLSALICYLIC ACID [Suspect]
     Indication: SKIN LESION
  4. TRIAMCINOLONE [Suspect]
     Indication: SKIN LESION
     Dosage: 10 MG/ML,  AT 2-WEEK INTERVALS.
  5. STEROIDS NOS [Suspect]
     Indication: SKIN LESION
  6. ANTIBIOTICS [Suspect]
     Indication: SKIN LESION

REACTIONS (6)
  - Pyoderma gangrenosum [Recovered/Resolved]
  - Skin ulcer [Recovered/Resolved]
  - Skin lesion [Recovered/Resolved]
  - Pain [Recovered/Resolved]
  - Granuloma [Recovered/Resolved]
  - Drug ineffective [Unknown]
